FAERS Safety Report 13853747 (Version 1)
Quarter: 2017Q3

REPORT INFORMATION
  Report Type: Spontaneous
  Country: BE (occurrence: BE)
  Receive Date: 20170809
  Receipt Date: 20170809
  Transmission Date: 20171127
  Serious: Yes (Hospitalization, Other)
  Sender: FDA-Public Use
  Company Number: BE-MYLANLABS-2017M1048601

PATIENT

DRUGS (3)
  1. COLCHICINE. [Suspect]
     Active Substance: COLCHICINE
     Indication: GOUT
     Route: 065
  2. PIROXICAM. [Suspect]
     Active Substance: PIROXICAM
     Indication: OSTEOARTHRITIS
     Route: 065
  3. METHYLPREDNISOLONE. [Concomitant]
     Active Substance: METHYLPREDNISOLONE
     Indication: GOUT
     Dosage: 64 MG DAILY
     Route: 065

REACTIONS (4)
  - Gout [Recovered/Resolved]
  - Symptom masked [Recovered/Resolved]
  - Peptic ulcer haemorrhage [Unknown]
  - Diarrhoea [Unknown]
